FAERS Safety Report 8467424-7 (Version None)
Quarter: 2012Q2

REPORT INFORMATION
  Report Type: 
  Country: None (occurrence: None)
  Receive Date: 20120626
  Receipt Date: 20120621
  Transmission Date: 20120825
  Serious: Yes (Death)
  Sender: FDA-Public Use
  Company Number: US-BAYER-2012-062046

PATIENT
  Age: 70 Year

DRUGS (3)
  1. NEXAVAR [Suspect]
     Indication: OESOPHAGEAL CARCINOMA
  2. FORTEO [Concomitant]
  3. NEXAVAR [Suspect]
     Indication: SPINAL CORD NEOPLASM

REACTIONS (1)
  - DEATH [None]
